FAERS Safety Report 23021099 (Version 1)
Quarter: 2023Q4

REPORT INFORMATION
  Report Type: Spontaneous
  Country: GB (occurrence: GB)
  Receive Date: 20231003
  Receipt Date: 20231003
  Transmission Date: 20240109
  Serious: Yes (Life-Threatening, Hospitalization, Disabling, Other)
  Sender: FDA-Public Use
  Company Number: None

PATIENT
  Age: 43 Year
  Sex: Female
  Weight: 54 kg

DRUGS (5)
  1. QUETIAPINE [Suspect]
     Active Substance: QUETIAPINE
     Indication: Mania
     Dosage: 25 MG
     Route: 065
     Dates: start: 20210801, end: 20211020
  2. LAMOTRIGINE [Concomitant]
     Active Substance: LAMOTRIGINE
     Indication: Product used for unknown indication
     Dosage: UNKNOWN
     Route: 065
  3. MODAFINIL [Concomitant]
     Active Substance: MODAFINIL
     Indication: Product used for unknown indication
     Dosage: UNKNOWN
     Route: 065
  4. PREGABALIN [Concomitant]
     Active Substance: PREGABALIN
     Indication: Product used for unknown indication
     Dosage: UNKNOWN
     Route: 065
  5. VALIUM [Concomitant]
     Active Substance: DIAZEPAM
     Indication: Product used for unknown indication
     Dosage: UNKNOWN
     Route: 065

REACTIONS (17)
  - Product prescribing error [Unknown]
  - Somnolence [Recovered/Resolved]
  - Appetite disorder [Recovered/Resolved]
  - Nightmare [Recovered/Resolved]
  - Akathisia [Not Recovered/Not Resolved]
  - Agitation [Not Recovered/Not Resolved]
  - Suicidal ideation [Not Recovered/Not Resolved]
  - Depression [Recovering/Resolving]
  - Impulse-control disorder [Not Recovered/Not Resolved]
  - Anger [Not Recovered/Not Resolved]
  - Abnormal weight gain [Recovered/Resolved]
  - Anxiety [Not Recovered/Not Resolved]
  - Agitated depression [Recovering/Resolving]
  - Aphasia [Not Recovered/Not Resolved]
  - Dysarthria [Recovered/Resolved]
  - Slow speech [Recovered/Resolved]
  - Fatigue [Unknown]
